FAERS Safety Report 7520039-7 (Version None)
Quarter: 2011Q2

REPORT INFORMATION
  Report Type: 
  Country: None (occurrence: None)
  Receive Date: 20110602
  Receipt Date: 20110524
  Transmission Date: 20111010
  Serious: Yes (Hospitalization, Disabling)
  Sender: FDA-Public Use
  Company Number: US-BAXTER-2011BH016784

PATIENT
  Age: 67 Year
  Sex: Female
  Weight: 72 kg

DRUGS (10)
  1. FENTANYL [Suspect]
     Indication: SEDATIVE THERAPY
     Route: 065
     Dates: start: 20110421
  2. FISH OIL [Concomitant]
     Indication: BLOOD CHOLESTEROL INCREASED
     Route: 048
  3. MOBIC [Concomitant]
     Indication: ARTHRITIS
     Route: 048
  4. AMLODIPINE BESYLATE [Concomitant]
     Indication: HYPERTENSION
     Route: 048
  5. SUPRANE [Suspect]
     Indication: SEDATIVE THERAPY
     Route: 055
     Dates: start: 20110421, end: 20110421
  6. MORPHINE [Suspect]
     Indication: SEDATIVE THERAPY
     Route: 065
     Dates: start: 20110421
  7. OTHER UNSPECIFIED MEDICATIONS [Suspect]
     Indication: SEDATIVE THERAPY
     Route: 065
     Dates: start: 20110421
  8. LISINOPRIL [Concomitant]
     Indication: HYPERTENSION
     Route: 048
  9. ASPIRIN [Concomitant]
     Indication: PRODUCT USED FOR UNKNOWN INDICATION
     Route: 048
  10. ZANTAC [Concomitant]
     Indication: GASTROOESOPHAGEAL REFLUX DISEASE
     Route: 048

REACTIONS (1)
  - CONFUSIONAL STATE [None]
